FAERS Safety Report 5179689-8 (Version None)
Quarter: 2006Q4

REPORT INFORMATION
  Report Type: 
  Country: None (occurrence: None)
  Receive Date: 20061212
  Receipt Date: 20061204
  Transmission Date: 20070319
  Serious: Yes (Other)
  Sender: FDA-Public Use
  Company Number: 200612AGG00526

PATIENT
  Age: 78 Year
  Sex: Male

DRUGS (5)
  1. AGGRASTAT [Suspect]
     Indication: ELECTROCARDIOGRAM CHANGE
     Dosage: IV (ICH 042)
     Route: 042
     Dates: start: 20061123
  2. THERAPIES UNSPECIFIED [Concomitant]
  3. ASPIRIN [Concomitant]
  4. CLOPIDOGREL BISULFATE [Concomitant]
  5. METFORMIN HCL [Concomitant]

REACTIONS (3)
  - BLOOD GLUCOSE INCREASED [None]
  - HAEMATOCRIT DECREASED [None]
  - MYOCARDIAL INFARCTION [None]
